FAERS Safety Report 8401755-1 (Version None)
Quarter: 2012Q2

REPORT INFORMATION
  Report Type: 
  Country: None (occurrence: None)
  Receive Date: 20120529
  Receipt Date: 20120514
  Transmission Date: 20120825
  Serious: Yes (Hospitalization)
  Sender: FDA-Public Use
  Company Number: 7132367

PATIENT
  Age: 85 Year
  Sex: Male

DRUGS (13)
  1. DAFALGAN CODEINE (PANADEINE CO) (COATED TABLET) (PARACETAMOL, CODEINE) [Suspect]
     Indication: PAIN
     Dosage: 6 DF (6 DF, 1 IN 1 D)
     Route: 048
     Dates: start: 20120131
  2. NITRIDERM (LYCERYL TRINITRATE) [Concomitant]
  3. LEVOTHYROXINE SODIUM [Suspect]
     Indication: HYPOTHYROIDISM
     Dosage: 1 DF (1 DF, 1 IN 1 D)
     Route: 048
  4. FUROSEMIDE [Concomitant]
  5. GAVISCON [Concomitant]
  6. PREVISCAN (FLUINDIONE) (FLUINDIONE) [Suspect]
     Indication: ARRHYTHMIA
     Dosage: 1.25 OR 1.5 ONE IN TWO DAYS
     Route: 048
     Dates: end: 20120206
  7. CRESTOR [Suspect]
     Indication: HYPERCHOLESTEROLAEMIA
     Dosage: 1 DF (1 DF, 1 IN 1 D)
     Route: 048
  8. BISOPROLOL FUMARATE [Concomitant]
  9. REPAGLINIDE [Concomitant]
  10. METFFORMIN HYDROCHLORIDE [Concomitant]
  11. DIGOXIN [Concomitant]
  12. POTASSIUM CHLORIDE [Concomitant]
  13. LANSOPRAZOLE [Concomitant]

REACTIONS (6)
  - HAEMATOMA [None]
  - INTERNATIONAL NORMALISED RATIO INCREASED [None]
  - FALL [None]
  - PAIN [None]
  - DRUG INTERACTION [None]
  - ATRIAL FIBRILLATION [None]
